FAERS Safety Report 10726150 (Version 1)
Quarter: 2015Q1

REPORT INFORMATION
  Report Type: Spontaneous
  Country: US (occurrence: US)
  Receive Date: 20150121
  Receipt Date: 20150121
  Transmission Date: 20150721
  Serious: Yes (Hospitalization)
  Sender: FDA-Public Use
  Company Number: US-SUN PHARMACEUTICAL INDUSTRIES LTD-2015SUN00087

PATIENT

DRUGS (3)
  1. LISINOPRIL. [Suspect]
     Active Substance: LISINOPRIL
     Indication: HYPERTENSION
     Route: 065
  2. METOPROLOL TARTATE [Suspect]
     Active Substance: METOPROLOL TARTRATE
     Indication: HYPERTENSION
     Route: 065
  3. AMLODIPINE [Suspect]
     Active Substance: AMLODIPINE BESYLATE
     Indication: HYPERTENSION
     Route: 065

REACTIONS (12)
  - Acute respiratory failure [Unknown]
  - Bradycardia [Unknown]
  - Pulmonary oedema [None]
  - Hypotension [Unknown]
  - Acidosis [None]
  - Continuous haemodiafiltration [None]
  - Haemodynamic instability [None]
  - Hyperlipidaemia [None]
  - No therapeutic response [None]
  - Fluid overload [None]
  - Renal failure [Unknown]
  - Intentional overdose [Unknown]
